FAERS Safety Report 17967266 (Version 2)
Quarter: 2020Q3

REPORT INFORMATION
  Report Type: Spontaneous
  Country: GR (occurrence: GR)
  Receive Date: 20200701
  Receipt Date: 20200807
  Transmission Date: 20201103
  Serious: Yes (Life-Threatening, Other)
  Sender: FDA-Public Use
  Company Number: NVSC2020GR184329

PATIENT
  Age: 75 Year
  Sex: Female

DRUGS (12)
  1. DOXORUBICINE [Suspect]
     Active Substance: DOXORUBICIN
     Indication: KAPOSI^S SARCOMA
     Dosage: UNK (4 CYCLES) REPEATED EVERY 21 DAYS
     Route: 062
  2. VALGANCICLOVIR. [Suspect]
     Active Substance: VALGANCICLOVIR
     Indication: KAPOSI^S SARCOMA
     Dosage: 450 MG, BID
     Route: 062
  3. RITUXIMAB. [Suspect]
     Active Substance: RITUXIMAB
     Indication: CASTLEMAN^S DISEASE
  4. VALGANCICLOVIR. [Suspect]
     Active Substance: VALGANCICLOVIR
     Indication: CASTLEMAN^S DISEASE
  5. PREDNISONE. [Suspect]
     Active Substance: PREDNISONE
     Indication: CASTLEMAN^S DISEASE
  6. VINCRISTINE [Suspect]
     Active Substance: VINCRISTINE
     Indication: CASTLEMAN^S DISEASE
  7. RITUXIMAB. [Suspect]
     Active Substance: RITUXIMAB
     Indication: KAPOSI^S SARCOMA
     Dosage: UNK (4 CYCLES) REPEATED EVERY 21 DAYS
     Route: 062
  8. DOXORUBICINE [Suspect]
     Active Substance: DOXORUBICIN
     Indication: CASTLEMAN^S DISEASE
  9. PREDNISONE. [Suspect]
     Active Substance: PREDNISONE
     Indication: KAPOSI^S SARCOMA
     Dosage: UNK UNK, CYCLIC
     Route: 062
  10. VINCRISTINE [Suspect]
     Active Substance: VINCRISTINE
     Indication: KAPOSI^S SARCOMA
     Dosage: UNK (4 CYCLES) REPEATED EVERY 21 DAYS
     Route: 062
  11. CYCLOPHOSPHAMIDE. [Suspect]
     Active Substance: CYCLOPHOSPHAMIDE
     Indication: KAPOSI^S SARCOMA
     Dosage: UNK (4 CYCLES) REPEATED EVERY 21 DAYS
     Route: 062
  12. CYCLOPHOSPHAMIDE. [Suspect]
     Active Substance: CYCLOPHOSPHAMIDE
     Indication: CASTLEMAN^S DISEASE

REACTIONS (3)
  - Pneumonia [Unknown]
  - Product use in unapproved indication [Unknown]
  - Neutropenia [Unknown]
